FAERS Safety Report 20611792 (Version 3)
Quarter: 2022Q2

REPORT INFORMATION
  Report Type: Report from Study
  Country: RU (occurrence: RU)
  Receive Date: 20220318
  Receipt Date: 20220412
  Transmission Date: 20220721
  Serious: Yes (Death, Other)
  Sender: FDA-Public Use
  Company Number: RU-NOVARTISPH-NVSC2022RU061607

PATIENT
  Age: 68 Year
  Sex: Female

DRUGS (8)
  1. PIQRAY [Suspect]
     Active Substance: ALPELISIB
     Indication: Adenoid cystic carcinoma
     Dosage: 300 MG, QD
     Route: 048
     Dates: start: 20220205
  2. PIQRAY [Suspect]
     Active Substance: ALPELISIB
     Indication: Salivary gland cancer
  3. LENVATINIB [Concomitant]
     Active Substance: LENVATINIB
     Indication: Product used for unknown indication
     Dosage: 20 MG, QD
     Route: 065
  4. DEXAMETHASONE [Concomitant]
     Active Substance: DEXAMETHASONE
     Indication: Product used for unknown indication
     Dosage: UNK, BID (8 ML IN THE MORNING, 4 ML IN THE EVENING, 8 ML+4 ML)
     Route: 065
  5. FENTANYL [Concomitant]
     Active Substance: FENTANYL
     Indication: Product used for unknown indication
     Dosage: UNK, (25 MK PLASTER)
     Route: 065
  6. FENTANYL [Concomitant]
     Active Substance: FENTANYL
     Dosage: UNK, (25 MCG PLASTER)
     Route: 065
  7. TRAMADOL [Concomitant]
     Active Substance: TRAMADOL
     Indication: Product used for unknown indication
     Dosage: 100 MG, QID
     Route: 030
  8. FRAGMIN [Concomitant]
     Active Substance: DALTEPARIN SODIUM
     Indication: Product used for unknown indication
     Dosage: UNK, QD, (5000 UNITS)
     Route: 058

REACTIONS (7)
  - Adenoid cystic carcinoma [Fatal]
  - Malignant neoplasm progression [Fatal]
  - Asthenia [Unknown]
  - Speech disorder [Unknown]
  - Loss of control of legs [Unknown]
  - Metastases to meninges [Unknown]
  - Product use in unapproved indication [Unknown]

NARRATIVE: CASE EVENT DATE: 20220329
